FAERS Safety Report 11735457 (Version 1)
Quarter: 2015Q4

REPORT INFORMATION
  Report Type: Spontaneous
  Country: IL (occurrence: IL)
  Receive Date: 20151113
  Receipt Date: 20151113
  Transmission Date: 20160304
  Serious: Yes (Life-Threatening, Hospitalization)
  Sender: FDA-Public Use
  Company Number: IL-MYLANLABS-2015M1038988

PATIENT

DRUGS (2)
  1. DOXYCYCLINE. [Suspect]
     Active Substance: DOXYCYCLINE
     Indication: RELAPSING FEVER
     Dosage: ADMINISTERED ON DAY 1
     Route: 048
  2. DOXYCYCLINE. [Suspect]
     Active Substance: DOXYCYCLINE
     Dosage: SUBSEQUENTLY ADMINISTERED AT 100MG DAILY
     Route: 048

REACTIONS (1)
  - Jarisch-Herxheimer reaction [Unknown]
